FAERS Safety Report 25564558 (Version 2)
Quarter: 2025Q3

REPORT INFORMATION
  Report Type: Spontaneous
  Country: US (occurrence: US)
  Receive Date: 20250716
  Receipt Date: 20250722
  Transmission Date: 20251021
  Serious: No
  Sender: BAYER HEALTHCARE PHARMACEUTICALS INC.
  Company Number: US-BAYER-2025A090367

PATIENT
  Age: 55 Year
  Sex: Female

DRUGS (1)
  1. MIRENA [Suspect]
     Active Substance: LEVONORGESTREL
     Dosage: 20?G/DAY
     Route: 015
     Dates: start: 202210, end: 202502

REACTIONS (3)
  - Withdrawal bleed [Not Recovered/Not Resolved]
  - Amenorrhoea [Recovered/Resolved]
  - Adverse event [None]

NARRATIVE: CASE EVENT DATE: 20241201
